FAERS Safety Report 5238002-8 (Version None)
Quarter: 2007Q1

REPORT INFORMATION
  Report Type: 
  Country: None (occurrence: None)
  Receive Date: 20070214
  Receipt Date: 20070202
  Transmission Date: 20070707
  Serious: Yes (Death, Hospitalization)
  Sender: FDA-Public Use
  Company Number: FR-PFIZER INC-2007007763

PATIENT
  Sex: Male
  Weight: 72 kg

DRUGS (9)
  1. SU-011,248 [Suspect]
     Indication: HEPATIC NEOPLASM MALIGNANT
     Route: 048
     Dates: start: 20060420, end: 20070124
  2. BROMAZEPAM [Concomitant]
     Route: 048
  3. METHYLPREDNISOLONE 16MG TAB [Concomitant]
     Route: 048
     Dates: start: 19900101
  4. VALSARTAN [Concomitant]
     Route: 048
     Dates: start: 19990101
  5. DI-ANTALVIC [Concomitant]
     Route: 048
     Dates: start: 20060401
  6. PRAVASTATIN SODIUM [Concomitant]
     Route: 048
     Dates: start: 20060101
  7. DIFLUCORTOLONE VALERATE [Concomitant]
     Route: 048
     Dates: start: 20060503
  8. BUFEXAMAC [Concomitant]
     Route: 061
     Dates: start: 20061003
  9. OXYCODONE [Concomitant]
     Route: 048

REACTIONS (4)
  - BLOOD CREATINE INCREASED [None]
  - HYPERURICAEMIA [None]
  - PAIN [None]
  - RENAL FAILURE [None]
